FAERS Safety Report 8085176-X (Version None)
Quarter: 2012Q1

REPORT INFORMATION
  Report Type: 
  Country: None (occurrence: None)
  Receive Date: 20120128
  Receipt Date: 20110310
  Transmission Date: 20120608
  Serious: No
  Sender: FDA-Public Use
  Company Number: US-ABBOTT-11P-163-0711645-00

PATIENT
  Sex: Female
  Weight: 49.032 kg

DRUGS (14)
  1. MIGRANAL [Concomitant]
     Indication: MIGRAINE
     Route: 045
  2. FOLIC ACID [Concomitant]
     Indication: RHEUMATOID ARTHRITIS
  3. HUMIRA [Suspect]
     Indication: RHEUMATOID ARTHRITIS
     Route: 048
  4. FOSAMAX [Concomitant]
     Indication: PRODUCT USED FOR UNKNOWN INDICATION
     Route: 048
  5. SEROQUEL [Concomitant]
     Indication: INSOMNIA
  6. CYMBALTA [Concomitant]
     Indication: PRODUCT USED FOR UNKNOWN INDICATION
     Dosage: QAM
  7. LUNESTA [Concomitant]
     Indication: INSOMNIA
  8. DEPO-PROVERA [Concomitant]
     Indication: MIGRAINE
  9. CYANOCOBALAMIN [Concomitant]
     Indication: PRODUCT USED FOR UNKNOWN INDICATION
     Route: 048
  10. TOPAMAX [Concomitant]
     Indication: MIGRAINE
     Route: 048
  11. METHOTREXATE [Suspect]
     Indication: RHEUMATOID ARTHRITIS
     Dates: end: 20110129
  12. METHOTREXATE [Suspect]
  13. MYCOPHENOLATE MOFETIL (CELLCEPT) [Suspect]
     Indication: ANAEMIA
     Route: 048
     Dates: start: 20101201, end: 20110101
  14. VITAMIN D [Concomitant]
     Indication: VITAMIN SUPPLEMENTATION

REACTIONS (4)
  - RHEUMATOID ARTHRITIS [None]
  - MIGRAINE [None]
  - FATIGUE [None]
  - ANAEMIA [None]
